FAERS Safety Report 20170164 (Version 1)
Quarter: 2021Q4

REPORT INFORMATION
  Report Type: Spontaneous
  Country: FR (occurrence: FR)
  Receive Date: 20211210
  Receipt Date: 20211210
  Transmission Date: 20220303
  Serious: Yes (Death)
  Sender: FDA-Public Use
  Company Number: FR-NOVARTISPH-NVSC2021FR279977

PATIENT
  Age: 64 Year
  Sex: Female
  Weight: 98.6 kg

DRUGS (17)
  1. ESIDREX [Suspect]
     Active Substance: HYDROCHLOROTHIAZIDE
     Indication: Product used for unknown indication
     Dosage: 12.5 MG, QD
     Route: 048
     Dates: start: 20210827, end: 20210901
  2. OCTREOTIDE [Suspect]
     Active Substance: OCTREOTIDE
     Indication: Product used for unknown indication
     Dosage: 600 MG
     Route: 042
     Dates: start: 20210830, end: 20210903
  3. AMOXICILLIN\CLAVULANIC ACID [Suspect]
     Active Substance: AMOXICILLIN\CLAVULANIC ACID
     Indication: Bronchial obstruction
     Dosage: 3 DOSAGE FORM, QD
     Route: 042
     Dates: start: 20210827, end: 20210903
  4. CYANOCOBALAMIN\PYRIDOXINE HYDROCHLORIDE\THIAMINE [Suspect]
     Active Substance: CYANOCOBALAMIN\PYRIDOXINE HYDROCHLORIDE\THIAMINE
     Indication: Vitamin supplementation
     Dosage: 4 DOSAGE FORM, QD
     Route: 048
     Dates: start: 20210827, end: 20210915
  5. ECONAZOLE [Suspect]
     Active Substance: ECONAZOLE
     Indication: Dermatophytosis
     Dosage: 2 DOSAGE FORM, QD
     Route: 003
     Dates: start: 20210827, end: 20210906
  6. PANTOPRAZOLE SODIUM [Suspect]
     Active Substance: PANTOPRAZOLE SODIUM
     Indication: Gastric ulcer
     Dosage: 80 MG, QD
     Route: 048
     Dates: start: 20210829, end: 20210922
  7. CEFTRIAXONE [Suspect]
     Active Substance: CEFTRIAXONE
     Indication: Urinary tract infection
     Dosage: 1 G, QD
     Route: 042
     Dates: start: 20210902, end: 20210905
  8. FOLIC ACID [Suspect]
     Active Substance: FOLIC ACID
     Indication: Vitamin supplementation
     Dosage: 5 MG, QD
     Route: 048
     Dates: start: 20210831, end: 20210927
  9. NOREPINEPHRINE [Suspect]
     Active Substance: NOREPINEPHRINE
     Indication: Shock
     Dosage: 0.4 MG, QD
     Route: 042
     Dates: start: 20210830, end: 20210916
  10. ACETAMINOPHEN [Suspect]
     Active Substance: ACETAMINOPHEN
     Indication: Pain
     Dosage: 3 G, TID
     Route: 042
     Dates: start: 20210903, end: 20210919
  11. VALIUM [Suspect]
     Active Substance: DIAZEPAM
     Indication: Delirium tremens
     Dosage: 1 DOSAGE FORM, QD
     Route: 048
     Dates: start: 20210826, end: 20210901
  12. KARDEGIC [Suspect]
     Active Substance: ASPIRIN DL-LYSINE
     Indication: Peripheral arterial occlusive disease
     Dosage: 75 MG, QD
     Route: 042
     Dates: start: 20210831, end: 20210922
  13. CIPROFLOXACIN [Suspect]
     Active Substance: CIPROFLOXACIN
     Indication: Urinary tract infection
     Dosage: 400 MG, BID
     Route: 065
     Dates: start: 20210902, end: 20210905
  14. CIPROFLOXACIN [Suspect]
     Active Substance: CIPROFLOXACIN
     Dosage: 800 MG, QD
     Route: 065
     Dates: start: 20210902, end: 20210905
  15. POTASSIUM [Suspect]
     Active Substance: POTASSIUM
     Indication: Hypokalaemia
     Dosage: 6 DOSAGE FORM (6 TABLESPOONS), QD
     Route: 048
     Dates: start: 20210902, end: 20210905
  16. LINEZOLID [Suspect]
     Active Substance: LINEZOLID
     Indication: Product used for unknown indication
     Dosage: UNK
     Route: 065
     Dates: start: 20210906
  17. CILASTATIN SODIUM\IMIPENEM [Suspect]
     Active Substance: CILASTATIN SODIUM\IMIPENEM
     Indication: Product used for unknown indication
     Dosage: UNK
     Route: 065
     Dates: start: 20210906

REACTIONS (1)
  - Acute generalised exanthematous pustulosis [Fatal]

NARRATIVE: CASE EVENT DATE: 20210904
